FAERS Safety Report 7812405-7 (Version None)
Quarter: 2011Q4

REPORT INFORMATION
  Report Type: 
  Country: None (occurrence: None)
  Receive Date: 20111013
  Receipt Date: 20110930
  Transmission Date: 20120403
  Serious: Yes (Other)
  Sender: FDA-Public Use
  Company Number: US-ENDO PHARMACEUTICALS INC.-OPER20110255

PATIENT
  Sex: Male

DRUGS (2)
  1. OPANA ER [Suspect]
     Indication: PAIN
     Route: 048
  2. OPANA [Suspect]
     Indication: BREAKTHROUGH PAIN
     Route: 048

REACTIONS (2)
  - DRUG DEPENDENCE [None]
  - AMPHETAMINES POSITIVE [None]
